FAERS Safety Report 13966715 (Version 1)
Quarter: 2017Q3

REPORT INFORMATION
  Report Type: Spontaneous
  Country: US (occurrence: US)
  Receive Date: 20170914
  Receipt Date: 20170914
  Transmission Date: 20171128
  Serious: Yes (Hospitalization)
  Sender: FDA-Public Use
  Company Number: US-UNICHEM LABORATORIES LIMITED-UCM201709-000233

PATIENT
  Age: 23 Year
  Sex: Male

DRUGS (7)
  1. LORAZEPAM. [Concomitant]
     Active Substance: LORAZEPAM
     Indication: AGITATION
  2. FLUMAZENIL. [Concomitant]
     Active Substance: FLUMAZENIL
  3. LAMOTRIGINE. [Suspect]
     Active Substance: LAMOTRIGINE
  4. CLONIDINE. [Concomitant]
     Active Substance: CLONIDINE
     Indication: AGITATION
  5. FLUDROCORTISONE [Suspect]
     Active Substance: FLUDROCORTISONE
  6. HALOPERIDOL. [Concomitant]
     Active Substance: HALOPERIDOL
     Indication: AGITATION
  7. DIAZEPAM. [Concomitant]
     Active Substance: DIAZEPAM
     Indication: AGITATION

REACTIONS (13)
  - Coma [Unknown]
  - Generalised tonic-clonic seizure [Unknown]
  - Anxiety [Recovered/Resolved]
  - Ataxia [Recovered/Resolved]
  - Tachypnoea [Unknown]
  - Lethargy [Unknown]
  - Intentional overdose [Unknown]
  - Pneumonia aspiration [Unknown]
  - Heart rate increased [Unknown]
  - Myoclonus [Unknown]
  - Agitation [Unknown]
  - Toxicity to various agents [Unknown]
  - Blood pressure increased [Unknown]
